FAERS Safety Report 12603420 (Version 1)
Quarter: 2016Q3

REPORT INFORMATION
  Report Type: Spontaneous
  Country: JP (occurrence: JP)
  Receive Date: 20160728
  Receipt Date: 20160728
  Transmission Date: 20161109
  Serious: Yes (Other)
  Sender: FDA-Public Use
  Company Number: JP-WARNER CHILCOTT, LLC-1055663

PATIENT
  Sex: Male

DRUGS (1)
  1. ACTONEL [Suspect]
     Active Substance: RISEDRONATE SODIUM
     Route: 048
     Dates: start: 201507, end: 201605

REACTIONS (2)
  - Oesophageal carcinoma [Unknown]
  - Tooth disorder [Unknown]

NARRATIVE: CASE EVENT DATE: 201605
